FAERS Safety Report 18398256 (Version 1)
Quarter: 2020Q4

REPORT INFORMATION
  Report Type: Spontaneous
  Country: US (occurrence: US)
  Receive Date: 20201019
  Receipt Date: 20201019
  Transmission Date: 20210114
  Serious: Yes (Hospitalization)
  Sender: FDA-Public Use
  Company Number: US-MYLANLABS-2020M1087732

PATIENT
  Age: 15 Year
  Sex: Female

DRUGS (2)
  1. CISPLATIN. [Suspect]
     Active Substance: CISPLATIN
     Indication: AESTHESIONEUROBLASTOMA
     Dosage: 3 ROUNDS OF CHEMOTHERAPY OVER 2 MONTHS
     Route: 065
  2. ETOPOSIDE. [Suspect]
     Active Substance: ETOPOSIDE
     Indication: AESTHESIONEUROBLASTOMA
     Dosage: 3 ROUNDS OF CHEMOTHERAPY OVER 2 MONTHS
     Route: 065

REACTIONS (1)
  - Calcinosis [Recovered/Resolved]
